FAERS Safety Report 8250279-3 (Version None)
Quarter: 2012Q2

REPORT INFORMATION
  Report Type: 
  Country: None (occurrence: None)
  Receive Date: 20120402
  Receipt Date: 20120323
  Transmission Date: 20120825
  Serious: Yes (Hospitalization)
  Sender: FDA-Public Use
  Company Number: US-BAYER-2011-122056

PATIENT
  Age: 36 Year
  Sex: Female
  Weight: 89.342 kg

DRUGS (14)
  1. YAZ [Suspect]
     Indication: ACNE
     Dosage: UNK
     Dates: start: 20090501, end: 20091201
  2. NASONEX [Concomitant]
  3. SINGULAIR [Concomitant]
     Dosage: UNK
     Dates: start: 19760101
  4. YASMIN [Suspect]
     Indication: ACNE
     Dosage: UNK
     Dates: start: 20090501, end: 20091201
  5. PREDNISONE TAB [Concomitant]
  6. YASMIN [Suspect]
     Indication: PREMENSTRUAL SYNDROME
  7. ALBUTEROL [Concomitant]
     Dosage: UNK
     Dates: start: 19760101
  8. PROMETHAZINE [Concomitant]
  9. DICYCLOMINE [Concomitant]
  10. YAZ [Suspect]
     Indication: PREMENSTRUAL SYNDROME
  11. ADVAIR DISKUS 100/50 [Concomitant]
     Dosage: UNK
     Dates: start: 19760101
  12. MULTI-VITAMIN [Concomitant]
  13. LIPITOR [Concomitant]
     Indication: BLOOD CHOLESTEROL INCREASED
     Dosage: UNK
     Dates: start: 20030101, end: 20090101
  14. PONSTEL [Concomitant]

REACTIONS (10)
  - VOMITING [None]
  - PROCEDURAL PAIN [None]
  - PAIN [None]
  - CHOLECYSTITIS CHRONIC [None]
  - ABDOMINAL PAIN [None]
  - QUALITY OF LIFE DECREASED [None]
  - NAUSEA [None]
  - GALLBLADDER DISORDER [None]
  - EMOTIONAL DISTRESS [None]
  - ANXIETY [None]
